FAERS Safety Report 9214621 (Version 1)
Quarter: 2013Q2

REPORT INFORMATION
  Report Type: Spontaneous
  Country: DE (occurrence: DE)
  Receive Date: 20130405
  Receipt Date: 20130405
  Transmission Date: 20140414
  Serious: Yes (Other)
  Sender: FDA-Public Use
  Company Number: DE-ELI_LILLY_AND_COMPANY-DE201303008189

PATIENT
  Sex: Female

DRUGS (4)
  1. FORSTEO [Suspect]
     Indication: OSTEOPOROSIS
     Dosage: UNK, QD
     Route: 058
     Dates: start: 20120615, end: 20130122
  2. CALCIUM +VIT D [Concomitant]
     Dosage: UNK, UNKNOWN
     Route: 065
  3. AMLODIPIN                          /00972401/ [Concomitant]
     Dosage: UNK, QD
     Route: 065
  4. SIMVABETA [Concomitant]
     Dosage: UNK UNK, QD
     Route: 065

REACTIONS (1)
  - Malignant neoplasm of thorax [Not Recovered/Not Resolved]
